FAERS Safety Report 8977498 (Version 1)
Quarter: 2012Q4

REPORT INFORMATION
  Report Type: Report from Study
  Country: US (occurrence: US)
  Receive Date: 20121219
  Receipt Date: 20121219
  Transmission Date: 20130627
  Serious: Yes (Hospitalization)
  Sender: FDA-Public Use
  Company Number: US-PFIZER INC-2012316950

PATIENT
  Age: 65 Year
  Sex: Female
  Weight: 97.51 kg

DRUGS (18)
  1. GABAPENTIN [Suspect]
     Dosage: UNK
  2. TAXUS LIBERTE PACLITAXEL-ELUTING CORONARY STENT [Suspect]
     Indication: ACUTE CORONARY SYNDROME
     Dosage: UNK
     Dates: start: 20100726, end: 20100726
  3. TAXUS LIBERTE PACLITAXEL-ELUTING CORONARY STENT [Suspect]
     Dosage: UNK
     Dates: start: 20100727, end: 20110906
  4. BLINDED THERAPY [Suspect]
     Dosage: UNK
     Dates: start: 20110906, end: 20120218
  5. EFFIENT [Suspect]
     Dosage: UNK
     Dates: start: 20120218, end: 201205
  6. ASPIRIN [Concomitant]
  7. TRICOR [Concomitant]
     Dosage: UNK
  8. AVAPRO [Concomitant]
     Dosage: UNK
  9. LANTUS [Concomitant]
     Dosage: UNK
  10. HUMALOG [Concomitant]
     Dosage: UNK
  11. GABAPENTIN [Concomitant]
  12. IMDUR [Concomitant]
  13. METOPROLOL [Concomitant]
  14. SINGULAIR [Concomitant]
  15. NIACIN [Concomitant]
  16. PROTONIX [Concomitant]
  17. SIMVASTATIN [Concomitant]
  18. COUMADINE [Concomitant]

REACTIONS (2)
  - Thrombocytopenia [Recovered/Resolved]
  - Haematochezia [Recovered/Resolved]
